FAERS Safety Report 14511493 (Version 4)
Quarter: 2020Q1

REPORT INFORMATION
  Report Type: Spontaneous
  Country: JP (occurrence: JP)
  Receive Date: 20180209
  Receipt Date: 20200323
  Transmission Date: 20200409
  Serious: Yes (Death, Hospitalization, Other)
  Sender: FDA-Public Use
  Company Number: JP-BRISTOL-MYERS SQUIBB COMPANY-BMS-2018-012623

PATIENT
  Age: 26 Year
  Sex: Female

DRUGS (8)
  1. CISPLATIN. [Concomitant]
     Active Substance: CISPLATIN
     Indication: METASTASIS
     Route: 065
  2. EPIRUBICIN [Concomitant]
     Active Substance: EPIRUBICIN
     Indication: METASTASIS
     Route: 065
  3. OPDIVO [Suspect]
     Active Substance: NIVOLUMAB
     Indication: HEPATIC CANCER
     Dosage: 1 DF, UNK
     Route: 042
     Dates: start: 20171201
  4. TACE [CHLOROTRIANISENE] [Concomitant]
     Indication: METASTASIS
     Route: 065
  5. 5-FLUOROURACIL [FLUOROURACIL] [Concomitant]
     Active Substance: FLUOROURACIL
     Indication: METASTASIS
     Route: 065
  6. LENVIMA [Suspect]
     Active Substance: LENVATINIB
     Indication: PRODUCT USED FOR UNKNOWN INDICATION
     Dosage: UNK
     Route: 065
  7. BEVACIZUMAB. [Concomitant]
     Active Substance: BEVACIZUMAB
     Indication: METASTASIS
     Route: 065
  8. YERVOY [Suspect]
     Active Substance: IPILIMUMAB
     Indication: HEPATIC CANCER
     Dosage: UNK
     Route: 065
     Dates: start: 20171203

REACTIONS (5)
  - Chest pain [Unknown]
  - Malignant neoplasm progression [Fatal]
  - Haemoptysis [Recovering/Resolving]
  - Diarrhoea [Recovering/Resolving]
  - Intentional product use issue [Unknown]

NARRATIVE: CASE EVENT DATE: 20180102
